FAERS Safety Report 9994834 (Version 1)
Quarter: 2014Q1

REPORT INFORMATION
  Report Type: Spontaneous
  Country: US (occurrence: US)
  Receive Date: 20140311
  Receipt Date: 20140311
  Transmission Date: 20141002
  Serious: Yes (Hospitalization)
  Sender: FDA-Public Use
  Company Number: US-BAYER-2014-033758

PATIENT
  Age: 33 Year
  Sex: Female

DRUGS (8)
  1. YAZ [Suspect]
  2. METRONIDAZOLE [Concomitant]
     Dosage: 500 MG, UNK
     Dates: start: 20120413
  3. FLUCONAZOLE [Concomitant]
     Dosage: 150 MG, UNK
     Dates: start: 20120424
  4. GLUCOSAMINE [Concomitant]
     Dosage: 500 MG, BID
     Dates: start: 20120523
  5. MULTIVITAMIN [Concomitant]
     Dosage: UNK UNK, QD
     Dates: start: 20120523
  6. FISH OIL [Concomitant]
     Dosage: 1000 MG, TID
     Dates: start: 20120523
  7. MORPHINE [Concomitant]
  8. IBUPROFEN [Concomitant]

REACTIONS (1)
  - Pulmonary embolism [None]
